FAERS Safety Report 14661949 (Version 1)
Quarter: 2018Q1

REPORT INFORMATION
  Report Type: Report from Study
  Country: None (occurrence: US)
  Receive Date: 20180320
  Receipt Date: 20180320
  Transmission Date: 20180509
  Serious: Yes (Other)
  Sender: FDA-Public Use
  Company Number: US-ABBVIE-18K-163-2287553-00

PATIENT
  Sex: Female

DRUGS (1)
  1. HUMIRA [Suspect]
     Active Substance: ADALIMUMAB
     Indication: PRODUCT USED FOR UNKNOWN INDICATION
     Route: 058

REACTIONS (6)
  - Peripheral swelling [Not Recovered/Not Resolved]
  - Poor peripheral circulation [Unknown]
  - Abdominal discomfort [Unknown]
  - Gastrointestinal obstruction [Unknown]
  - Pain in extremity [Not Recovered/Not Resolved]
  - Arteriosclerosis [Unknown]
